FAERS Safety Report 21289018 (Version 1)
Quarter: 2022Q3

REPORT INFORMATION
  Report Type: Spontaneous
  Country: US (occurrence: US)
  Receive Date: 20220902
  Receipt Date: 20220902
  Transmission Date: 20221026
  Serious: Yes (Hospitalization, Other)
  Sender: FDA-Public Use
  Company Number: US-ABBVIE-22K-163-4342775-00

PATIENT
  Age: 68 Year
  Sex: Female
  Weight: 78.542 kg

DRUGS (17)
  1. RINVOQ [Suspect]
     Active Substance: UPADACITINIB
     Indication: Rheumatoid arthritis
     Route: 048
     Dates: start: 202110, end: 202202
  2. SERTRALINE [Concomitant]
     Active Substance: SERTRALINE HYDROCHLORIDE
     Indication: Product used for unknown indication
     Route: 048
  3. EVISTA [Concomitant]
     Active Substance: RALOXIFENE HYDROCHLORIDE
     Indication: Product used for unknown indication
     Route: 048
  4. SIMVASTATIN [Concomitant]
     Active Substance: SIMVASTATIN
     Indication: Product used for unknown indication
     Dosage: IN THE EVENING
     Route: 048
  5. AMLODIPINE [Concomitant]
     Active Substance: AMLODIPINE BESYLATE
     Indication: Product used for unknown indication
     Route: 048
  6. FAMOTIDINE [Concomitant]
     Active Substance: FAMOTIDINE
     Indication: Product used for unknown indication
  7. VITAMIN D3 [Concomitant]
     Active Substance: CHOLECALCIFEROL
     Indication: Product used for unknown indication
  8. VITAMIN D3 [Concomitant]
     Active Substance: CHOLECALCIFEROL
     Indication: Product used for unknown indication
     Route: 048
  9. VALTREX [Concomitant]
     Active Substance: VALACYCLOVIR HYDROCHLORIDE
     Indication: Product used for unknown indication
     Route: 048
  10. CALCIUM [Concomitant]
     Active Substance: CALCIUM
     Indication: Product used for unknown indication
     Route: 048
  11. CALCIUM [Concomitant]
     Active Substance: CALCIUM
     Indication: Product used for unknown indication
     Route: 048
  12. PREDNISONE [Concomitant]
     Active Substance: PREDNISONE
     Indication: Product used for unknown indication
     Route: 048
  13. MEDROL [Concomitant]
     Active Substance: METHYLPREDNISOLONE
     Indication: Product used for unknown indication
     Route: 048
  14. ELIQUIS [Concomitant]
     Active Substance: APIXABAN
     Indication: Product used for unknown indication
     Dosage: 2 TABLETS 2 TIMES IN A DAY
     Route: 048
  15. SIMVASTATIN [Concomitant]
     Active Substance: SIMVASTATIN
     Indication: Product used for unknown indication
     Dosage: IN THE EVENING
     Route: 048
  16. EVISTA [Concomitant]
     Active Substance: RALOXIFENE HYDROCHLORIDE
     Indication: Product used for unknown indication
     Route: 048
  17. PREDNISONE [Concomitant]
     Active Substance: PREDNISONE
     Indication: Product used for unknown indication
     Route: 048

REACTIONS (3)
  - Pulmonary embolism [Recovered/Resolved]
  - Skin warm [Unknown]
  - Chest discomfort [Unknown]

NARRATIVE: CASE EVENT DATE: 20220402
